FAERS Safety Report 5124464-3 (Version None)
Quarter: 2006Q4

REPORT INFORMATION
  Report Type: 
  Country: None (occurrence: None)
  Receive Date: 20061006
  Receipt Date: 20060927
  Transmission Date: 20070319
  Serious: Yes (Other)
  Sender: FDA-Public Use
  Company Number: D0051055A

PATIENT

DRUGS (1)
  1. CEFTIN [Suspect]
     Indication: PROPHYLAXIS

REACTIONS (1)
  - NEPHROLITHIASIS [None]
